FAERS Safety Report 5008724-2 (Version None)
Quarter: 2006Q2

REPORT INFORMATION
  Report Type: 
  Country: None (occurrence: None)
  Receive Date: 20060518
  Receipt Date: 20060510
  Transmission Date: 20061013
  Serious: Yes (Death)
  Sender: FDA-Public Use
  Company Number: 2006BI006816

PATIENT
  Age: 50 Year
  Sex: Female
  Weight: 40.8237 kg

DRUGS (1)
  1. AVONEX [Suspect]
     Indication: MULTIPLE SCLEROSIS
     Dosage: 30 UG; QW; IM
     Route: 030
     Dates: start: 19980101, end: 20010101

REACTIONS (2)
  - DISEASE PROGRESSION [None]
  - MULTIPLE SCLEROSIS [None]
